FAERS Safety Report 4674795-6 (Version None)
Quarter: 2005Q2

REPORT INFORMATION
  Report Type: 
  Country: None (occurrence: None)
  Receive Date: 20050525
  Receipt Date: 20050510
  Transmission Date: 20051028
  Serious: Yes (Hospitalization)
  Sender: FDA-Public Use
  Company Number: 231876K05USA

PATIENT
  Age: 37 Year
  Sex: Male

DRUGS (5)
  1. REBIF [Suspect]
     Indication: MULTIPLE SCLEROSIS
     Dosage: SEE IMAGE
     Dates: start: 20030430, end: 20040817
  2. REBIF [Suspect]
     Indication: MULTIPLE SCLEROSIS
     Dosage: SEE IMAGE
     Dates: start: 20050324
  3. DILANTIN [Concomitant]
  4. PROVIGIL [Concomitant]
  5. PROZAC [Concomitant]

REACTIONS (5)
  - CELLULITIS [None]
  - FAT NECROSIS [None]
  - INJECTION SITE ABSCESS [None]
  - INJECTION SITE NECROSIS [None]
  - NECROTISING FASCIITIS [None]
